FAERS Safety Report 7384145-2 (Version None)
Quarter: 2011Q1

REPORT INFORMATION
  Report Type: 
  Country: None (occurrence: None)
  Receive Date: 20110330
  Receipt Date: 20110322
  Transmission Date: 20110831
  Serious: Yes (Death)
  Sender: FDA-Public Use
  Company Number: A0920559A

PATIENT
  Sex: Female

DRUGS (2)
  1. SPIRIVA [Concomitant]
  2. SERETIDE [Suspect]
     Dosage: 2PUFF PER DAY
     Route: 065
     Dates: start: 20070617, end: 20100712

REACTIONS (1)
  - PNEUMONIA [None]
